FAERS Safety Report 9539131 (Version 7)
Quarter: 2021Q3

REPORT INFORMATION
  Report Type: Spontaneous
  Country: DE (occurrence: DE)
  Receive Date: 20130920
  Receipt Date: 20210727
  Transmission Date: 20211014
  Serious: Yes (Hospitalization, Other)
  Sender: FDA-Public Use
  Company Number: DE-AMGEN-DEUSP2012014104

PATIENT
  Age: 8 Year
  Sex: Female
  Weight: 20 kg

DRUGS (4)
  1. PROLIA [Suspect]
     Active Substance: DENOSUMAB
     Indication: OSTEITIS DEFORMANS
     Dosage: 10 MG, ONE TIME DOSE
     Route: 058
     Dates: start: 20120301, end: 20120301
  2. VITAMIN D [Concomitant]
     Active Substance: VITAMIN D NOS
     Dosage: UNK
  3. PROLIA [Suspect]
     Active Substance: DENOSUMAB
     Indication: OFF LABEL USE
  4. FERROSOL [Concomitant]
     Dosage: 60 MG, UNK
     Route: 048
     Dates: start: 20120312

REACTIONS (18)
  - Tibia fracture [Unknown]
  - Polyuria [Unknown]
  - Off label use [Unknown]
  - Delayed puberty [Unknown]
  - Gait disturbance [Unknown]
  - Bone pain [Unknown]
  - Calcium metabolism disorder [Unknown]
  - Bone density decreased [Unknown]
  - Hip deformity [Unknown]
  - Hypercalcaemia [Unknown]
  - Hearing disability [Unknown]
  - Rebound effect [Unknown]
  - Constipation [Unknown]
  - Limb asymmetry [Unknown]
  - Growth retardation [Unknown]
  - Nausea [Unknown]
  - Hypocalcaemia [Recovered/Resolved]
  - Anaemia [Unknown]

NARRATIVE: CASE EVENT DATE: 2012
